FAERS Safety Report 16255094 (Version 1)
Quarter: 2019Q2

REPORT INFORMATION
  Report Type: Spontaneous
  Country: US (occurrence: US)
  Receive Date: 20190326
  Receipt Date: 20190326
  Transmission Date: 20190711
  Serious: Yes (Hospitalization)
  Sender: FDA-Public Use
  Company Number: None

PATIENT
  Age: 72 Year
  Sex: Male
  Weight: 97.52 kg

DRUGS (1)
  1. LOSARTAN TABS 100MG GENERIC FOR: COZARR TABS [Suspect]
     Active Substance: LOSARTAN
     Indication: HYPERTENSION
     Dosage: ?          QUANTITY:1 DF DOSAGE FORM;?
     Route: 048
     Dates: start: 20181122, end: 20190310

REACTIONS (5)
  - Abdominal discomfort [None]
  - Hyperhidrosis [None]
  - Loss of consciousness [None]
  - Incorrect dose administered [None]
  - Unevaluable event [None]

NARRATIVE: CASE EVENT DATE: 20181212
